FAERS Safety Report 14855879 (Version 1)
Quarter: 2018Q2

REPORT INFORMATION
  Report Type: Spontaneous
  Country: US (occurrence: US)
  Receive Date: 20180507
  Receipt Date: 20180507
  Transmission Date: 20180711
  Serious: No
  Sender: FDA-Public Use
  Company Number: US-ROCHE-1965529

PATIENT
  Sex: Female

DRUGS (2)
  1. OFEV [Concomitant]
     Active Substance: NINTEDANIB
  2. ESBRIET [Suspect]
     Active Substance: PIRFENIDONE
     Indication: IDIOPATHIC PULMONARY FIBROSIS
     Route: 048

REACTIONS (3)
  - Gastrointestinal disorder [Unknown]
  - Pruritus [Recovered/Resolved]
  - Psoriasis [Unknown]
